FAERS Safety Report 9839088 (Version 2)
Quarter: 2014Q1

REPORT INFORMATION
  Report Type: Report from Study
  Country: US (occurrence: US)
  Receive Date: 20140123
  Receipt Date: 20140207
  Transmission Date: 20141002
  Serious: Yes (Hospitalization)
  Sender: FDA-Public Use
  Company Number: US-JNJFOC-20140114003

PATIENT
  Age: 90 Year
  Sex: Male
  Weight: 67.5 kg

DRUGS (1)
  1. IMBRUVICA [Suspect]
     Indication: MANTLE CELL LYMPHOMA
     Route: 048
     Dates: start: 20131227, end: 201401

REACTIONS (1)
  - Appendicitis [Recovered/Resolved]
